FAERS Safety Report 12689950 (Version 1)
Quarter: 2016Q3

REPORT INFORMATION
  Report Type: Spontaneous
  Country: GB (occurrence: GB)
  Receive Date: 20160826
  Receipt Date: 20160826
  Transmission Date: 20161109
  Serious: Yes (Other)
  Sender: FDA-Public Use
  Company Number: GB-PFIZER INC-2016395705

PATIENT
  Age: 69 Year
  Sex: Female
  Weight: 67 kg

DRUGS (3)
  1. LIPITOR [Suspect]
     Active Substance: ATORVASTATIN CALCIUM
     Indication: AORTIC OCCLUSION
     Dosage: 20 MG, UNK
     Route: 048
     Dates: start: 20140201, end: 20160801
  2. BISOPROLOL FUMARATE. [Concomitant]
     Active Substance: BISOPROLOL FUMARATE
     Dosage: UNK
  3. AMIODARONE [Concomitant]
     Active Substance: AMIODARONE
     Dosage: UNK

REACTIONS (3)
  - Formication [Unknown]
  - Pruritus [Recovered/Resolved with Sequelae]
  - Insomnia [Unknown]

NARRATIVE: CASE EVENT DATE: 20160510
